FAERS Safety Report 25672775 (Version 1)
Quarter: 2025Q3

REPORT INFORMATION
  Report Type: Spontaneous
  Country: CA (occurrence: CA)
  Receive Date: 20250812
  Receipt Date: 20250812
  Transmission Date: 20251021
  Serious: Yes (Other)
  Sender: DEVA
  Company Number: CA-DEVA-2025-CA-002504

PATIENT
  Age: 37 Year
  Sex: Male

DRUGS (1)
  1. CEFTRIAXONE [Suspect]
     Active Substance: CEFTRIAXONE
     Indication: Lyme disease
     Route: 042

REACTIONS (1)
  - Facial paralysis [Unknown]
